FAERS Safety Report 22720693 (Version 3)
Quarter: 2024Q1

REPORT INFORMATION
  Report Type: Spontaneous
  Country: JP (occurrence: JP)
  Receive Date: 20230719
  Receipt Date: 20240229
  Transmission Date: 20240410
  Serious: Yes (Other)
  Sender: FDA-Public Use
  Company Number: JP-BRISTOL-MYERS SQUIBB COMPANY-2023-097899

PATIENT
  Age: 32 Year
  Sex: Female

DRUGS (2)
  1. YERVOY [Suspect]
     Active Substance: IPILIMUMAB
     Indication: Renal cell carcinoma
     Dosage: 4 TIMES OF ADMINISTRATIONS
  2. OPDIVO [Suspect]
     Active Substance: NIVOLUMAB
     Indication: Renal cell carcinoma
     Dosage: 4 TIMES OF ADMINISTRATIONS

REACTIONS (4)
  - Cardiomyopathy [Unknown]
  - Malaise [Unknown]
  - Dyspnoea [Unknown]
  - Chronic gastritis [Unknown]
